FAERS Safety Report 7727583-8 (Version None)
Quarter: 2011Q3

REPORT INFORMATION
  Report Type: 
  Country: None (occurrence: None)
  Receive Date: 20110902
  Receipt Date: 20110830
  Transmission Date: 20111222
  Serious: Yes (Hospitalization, Other)
  Sender: FDA-Public Use
  Company Number: US-PFIZER INC-2011147770

PATIENT
  Sex: Male

DRUGS (1)
  1. CHANTIX [Suspect]
     Indication: SMOKING CESSATION THERAPY
     Dosage: 1 MG, UNK
     Dates: start: 20070626, end: 20071015

REACTIONS (10)
  - TINNITUS [None]
  - HEADACHE [None]
  - CONFUSIONAL STATE [None]
  - ABNORMAL BEHAVIOUR [None]
  - ABNORMAL DREAMS [None]
  - PARANOIA [None]
  - SUICIDE ATTEMPT [None]
  - HOSTILITY [None]
  - MAJOR DEPRESSION [None]
  - HALLUCINATION, AUDITORY [None]
